FAERS Safety Report 24234140 (Version 2)
Quarter: 2024Q3

REPORT INFORMATION
  Report Type: Report from Study
  Country: US (occurrence: US)
  Receive Date: 20240821
  Receipt Date: 20240827
  Transmission Date: 20241017
  Serious: Yes (Hospitalization)
  Sender: EISAI
  Company Number: US-Eisai-EC-2024-164175

PATIENT
  Age: 76 Year
  Sex: Female

DRUGS (2)
  1. LENVIMA [Suspect]
     Active Substance: LENVATINIB
     Indication: Cholangiocarcinoma
     Route: 048
     Dates: start: 202404
  2. LENVIMA [Suspect]
     Active Substance: LENVATINIB
     Indication: Hepatic cancer
     Route: 048
     Dates: start: 202408

REACTIONS (2)
  - Hallucination [Unknown]
  - Renal impairment [Unknown]

NARRATIVE: CASE EVENT DATE: 20240601
